FAERS Safety Report 9765329 (Version 1)
Quarter: 2013Q4

REPORT INFORMATION
  Report Type: Spontaneous
  Country: US (occurrence: None)
  Receive Date: 20131216
  Receipt Date: 20131216
  Transmission Date: 20140711
  Serious: Yes (Other)
  Sender: FDA-Public Use
  Company Number: None

PATIENT
  Age: 34 Year
  Sex: Female
  Weight: 57.15 kg

DRUGS (1)
  1. MIRVASO [Suspect]
     Indication: ROSACEA
     Dosage: APPLIED DAILY TO AFFECTED AREA OVER THE SKIN.
     Dates: start: 20131211, end: 20131212

REACTIONS (3)
  - Erythema [None]
  - Feeling hot [None]
  - Rebound effect [None]
